FAERS Safety Report 24278109 (Version 1)
Quarter: 2024Q3

REPORT INFORMATION
  Report Type: Spontaneous
  Country: DE (occurrence: DE)
  Receive Date: 20240903
  Receipt Date: 20240903
  Transmission Date: 20241017
  Serious: Yes (Other)
  Sender: ELI LILLY AND CO
  Company Number: DE-ELI_LILLY_AND_COMPANY-DE202408013857

PATIENT
  Age: 71 Year
  Sex: Female

DRUGS (2)
  1. ABEMACICLIB [Suspect]
     Active Substance: ABEMACICLIB
     Indication: Porocarcinoma
     Dosage: 150 MG, BID
     Route: 048
     Dates: start: 202310, end: 202401
  2. LETROZOLE [Concomitant]
     Active Substance: LETROZOLE
     Indication: Porocarcinoma
     Dosage: UNK, UNKNOWN
     Route: 065
     Dates: start: 202310

REACTIONS (2)
  - Myocarditis [Unknown]
  - Off label use [Unknown]

NARRATIVE: CASE EVENT DATE: 20231001
